FAERS Safety Report 14612780 (Version 1)
Quarter: 2018Q1

REPORT INFORMATION
  Report Type: Other
  Country: IT (occurrence: IT)
  Receive Date: 20180308
  Receipt Date: 20180308
  Transmission Date: 20180509
  Serious: Yes (Death, Other)
  Sender: FDA-Public Use
  Company Number: IT-VELOXIS PHARMACEUTICALS-2043270

PATIENT
  Age: 62 Year
  Sex: Male

DRUGS (4)
  1. EVEROLIMUS. [Suspect]
     Active Substance: EVEROLIMUS
  2. ENVARSUS XR [Suspect]
     Active Substance: TACROLIMUS
     Indication: LIVER TRANSPLANT
     Dates: start: 2016
  3. CORTISONE [Suspect]
     Active Substance: CORTISONE\HYDROCORTISONE
  4. SIMULECT [Suspect]
     Active Substance: BASILIXIMAB

REACTIONS (3)
  - Leukopenia [Recovering/Resolving]
  - Sepsis [Fatal]
  - Graft versus host disease [Fatal]
